FAERS Safety Report 7892381-1 (Version None)
Quarter: 2011Q4

REPORT INFORMATION
  Report Type: 
  Country: None (occurrence: None)
  Receive Date: 20111104
  Receipt Date: 20111021
  Transmission Date: 20120403
  Serious: Yes (Death, Hospitalization)
  Sender: FDA-Public Use
  Company Number: FR-JNJFOC-20110900807

PATIENT
  Age: 77 Year
  Sex: Male
  Weight: 89 kg

DRUGS (11)
  1. REMICADE [Suspect]
     Route: 042
     Dates: start: 20110401
  2. LASIX [Concomitant]
  3. REMICADE [Suspect]
     Route: 042
     Dates: start: 20080101
  4. CRESTOR [Concomitant]
  5. LANSOPRAZOLE [Concomitant]
  6. ASPIRIN [Concomitant]
  7. REMICADE [Suspect]
     Route: 042
     Dates: start: 20100113
  8. METHOTREXATE [Concomitant]
     Route: 048
  9. ATENOLOL [Concomitant]
  10. REMICADE [Suspect]
     Indication: RHEUMATOID ARTHRITIS
     Route: 042
     Dates: end: 20090601
  11. REMICADE [Suspect]
     Route: 042
     Dates: end: 20091001

REACTIONS (3)
  - DISSEMINATED TUBERCULOSIS [None]
  - RASH [None]
  - ESCHERICHIA SEPSIS [None]
